FAERS Safety Report 7615684-4 (Version None)
Quarter: 2011Q3

REPORT INFORMATION
  Report Type: 
  Country: None (occurrence: None)
  Receive Date: 20110715
  Receipt Date: 20110715
  Transmission Date: 20111222
  Serious: Yes (Hospitalization)
  Sender: FDA-Public Use
  Company Number: None

PATIENT
  Age: 65 Year
  Sex: Male
  Weight: 145.4 kg

DRUGS (2)
  1. CAPECITABINE [Suspect]
     Indication: VASCULAR OPERATION
     Dosage: 2500 MG PO
     Route: 048
     Dates: start: 20110106
  2. CAPECITABINE [Suspect]
     Indication: COLON CANCER
     Dosage: 2500 MG PO
     Route: 048
     Dates: start: 20110106

REACTIONS (2)
  - DEEP VEIN THROMBOSIS [None]
  - PULMONARY EMBOLISM [None]
